FAERS Safety Report 9336952 (Version 1)
Quarter: 2013Q2

REPORT INFORMATION
  Report Type: Spontaneous
  Country: FR (occurrence: FR)
  Receive Date: 20130607
  Receipt Date: 20130607
  Transmission Date: 20140414
  Serious: Yes (Other)
  Sender: FDA-Public Use
  Company Number: FR-BRISTOL-MYERS SQUIBB COMPANY-18970830

PATIENT
  Age: 45 Year
  Sex: Male

DRUGS (3)
  1. REYATAZ CAPS 300 MG [Suspect]
     Indication: ANTIRETROVIRAL THERAPY
     Dosage: INITIAL DOSE:400MG/DAILY.?DECREASED TO 300 MG DAILY IN NOV2010
     Route: 048
     Dates: start: 2005, end: 201305
  2. NORVIR [Concomitant]
     Dates: start: 2005
  3. TRUVADA [Concomitant]
     Dates: start: 2005

REACTIONS (1)
  - Renal colic [Recovered/Resolved]
